FAERS Safety Report 7705391 (Version 2)
Quarter: 2015Q4

REPORT INFORMATION
  Report Type: Spontaneous
  Country: US (occurrence: US)
  Receive Date: 20101213
  Receipt Date: 20151218
  Transmission Date: 20160305
  Serious: Yes (Hospitalization, Other)
  Sender: FDA-Public Use
  Company Number: US-ROCHE-724566

PATIENT
  Age: 15 Year
  Sex: Male
  Weight: 88.5 kg

DRUGS (2)
  1. ACCUTANE [Suspect]
     Active Substance: ISOTRETINOIN
     Route: 048
     Dates: start: 20011016, end: 200201
  2. ACCUTANE [Suspect]
     Active Substance: ISOTRETINOIN
     Indication: ACNE
     Route: 048
     Dates: start: 20000828, end: 20001213

REACTIONS (14)
  - Lumbar radiculopathy [Unknown]
  - Crohn^s disease [Unknown]
  - Pilonidal cyst [Unknown]
  - Rhinorrhoea [Unknown]
  - Chest discomfort [Unknown]
  - Erythema nodosum [Recovered/Resolved]
  - Dyspnoea [Unknown]
  - Blood triglycerides increased [Unknown]
  - Colitis ulcerative [Unknown]
  - Arthritis [Unknown]
  - Gastrointestinal injury [Unknown]
  - Inflammatory bowel disease [Unknown]
  - Blood alkaline phosphatase increased [Unknown]
  - Blood glucose decreased [Unknown]

NARRATIVE: CASE EVENT DATE: 20000828
